FAERS Safety Report 5332670-8 (Version None)
Quarter: 2007Q2

REPORT INFORMATION
  Report Type: 
  Country: None (occurrence: None)
  Receive Date: 20070523
  Receipt Date: 20070511
  Transmission Date: 20071010
  Serious: Yes (Other)
  Sender: FDA-Public Use
  Company Number: US-PFIZER INC-2007026627

PATIENT
  Sex: Female
  Weight: 74.4 kg

DRUGS (5)
  1. CHANTIX [Suspect]
     Indication: EX-SMOKER
  2. CHANTIX [Suspect]
     Indication: TOBACCO ABUSE
  3. ACIPHEX [Concomitant]
  4. ADVAIR DISKUS 100/50 [Concomitant]
  5. ALBUTEROL [Concomitant]

REACTIONS (6)
  - BLOOD PRESSURE INCREASED [None]
  - DRY MOUTH [None]
  - DYSGEUSIA [None]
  - HYPERSENSITIVITY [None]
  - SPEECH DISORDER [None]
  - TONGUE DISORDER [None]
